FAERS Safety Report 15829185 (Version 1)
Quarter: 2019Q1

REPORT INFORMATION
  Report Type: Spontaneous
  Country: US (occurrence: US)
  Receive Date: 20190115
  Receipt Date: 20190115
  Transmission Date: 20190417
  Serious: No
  Sender: FDA-Public Use
  Company Number: US-ALLERGAN-1854511US

PATIENT
  Sex: Female

DRUGS (1)
  1. RESTASIS [Suspect]
     Active Substance: CYCLOSPORINE
     Indication: DRY EYE
     Dosage: UNKNOWN
     Route: 047

REACTIONS (5)
  - Dry eye [Unknown]
  - Drug ineffective [Unknown]
  - Eye pain [Unknown]
  - Eye irritation [Unknown]
  - Headache [Unknown]
